FAERS Safety Report 5258007-0 (Version None)
Quarter: 2007Q1

REPORT INFORMATION
  Report Type: 
  Country: None (occurrence: None)
  Receive Date: 20070307
  Receipt Date: 20061208
  Transmission Date: 20070707
  Serious: No
  Sender: FDA-Public Use
  Company Number: US-GLAXOSMITHKLINE-A0630946A

PATIENT
  Age: 83 Year
  Sex: Female

DRUGS (11)
  1. REQUIP [Suspect]
     Indication: RESTLESS LEGS SYNDROME
     Dosage: .25MG PER DAY
     Route: 048
     Dates: start: 20061006
  2. DARVOCET [Concomitant]
  3. FOLIC ACID [Concomitant]
  4. FISHOIL OMEGA-3 [Concomitant]
  5. LIPITOR [Concomitant]
  6. GEMFIBROZIL [Concomitant]
  7. FUROSEMIDE [Concomitant]
  8. COZAAR [Concomitant]
  9. PREMARIN [Concomitant]
  10. TOPROL-XL [Concomitant]
  11. CLOPIDOGREL [Concomitant]

REACTIONS (2)
  - DRUG INEFFECTIVE [None]
  - THERAPEUTIC RESPONSE UNEXPECTED [None]
